FAERS Safety Report 6232455-4 (Version None)
Quarter: 2009Q2

REPORT INFORMATION
  Report Type: 
  Country: None (occurrence: None)
  Receive Date: 20090617
  Receipt Date: 20090608
  Transmission Date: 20091009
  Serious: Yes (Hospitalization)
  Sender: FDA-Public Use
  Company Number: NL-ROCHE-637026

PATIENT
  Sex: Male

DRUGS (4)
  1. CAPECITABINE [Suspect]
     Indication: COLORECTAL CANCER
     Route: 042
     Dates: start: 20090206
  2. BEVACIZUMAB [Suspect]
     Indication: COLORECTAL CANCER
     Route: 048
     Dates: start: 20090206, end: 20090423
  3. PYRIDOXINE [Concomitant]
  4. TAMSULOSIN HCL [Concomitant]

REACTIONS (1)
  - Q FEVER [None]
